FAERS Safety Report 9331964 (Version 1)
Quarter: 2013Q2

REPORT INFORMATION
  Report Type: Spontaneous
  Country: JP (occurrence: JP)
  Receive Date: 20130605
  Receipt Date: 20130605
  Transmission Date: 20140414
  Serious: Yes (Hospitalization)
  Sender: FDA-Public Use
  Company Number: PHHY2013JP054540

PATIENT
  Sex: Female

DRUGS (2)
  1. SENNARIDE [Suspect]
     Dosage: 48 MG,
     Route: 048
  2. SENNARIDE [Suspect]
     Dosage: 36 MG,
     Route: 048

REACTIONS (2)
  - Hyperkalaemia [Recovered/Resolved]
  - Chest pain [Recovered/Resolved]
